FAERS Safety Report 11333046 (Version 1)
Quarter: 2015Q3

REPORT INFORMATION
  Report Type: Spontaneous
  Country: US (occurrence: US)
  Receive Date: 20150803
  Receipt Date: 20150803
  Transmission Date: 20151125
  Serious: Yes (Other)
  Sender: FDA-Public Use
  Company Number: US-LLY01-US200603001221

PATIENT
  Age: 47 Year
  Weight: 238 kg

DRUGS (3)
  1. DESYREL [Concomitant]
     Active Substance: TRAZODONE HYDROCHLORIDE
     Indication: DEPRESSION
     Dates: start: 200111
  2. ZYPREXA [Suspect]
     Active Substance: OLANZAPINE
     Indication: ANXIETY
     Dates: start: 20011121
  3. ZOLOFT                                  /USA/ [Concomitant]
     Indication: ANXIETY
     Dates: start: 200111

REACTIONS (3)
  - Type 1 diabetes mellitus [Unknown]
  - Type 2 diabetes mellitus [Unknown]
  - Weight increased [Unknown]

NARRATIVE: CASE EVENT DATE: 20030228
